FAERS Safety Report 16452481 (Version 6)
Quarter: 2020Q1

REPORT INFORMATION
  Report Type: Report from Study
  Country: US (occurrence: US)
  Receive Date: 20190619
  Receipt Date: 20200113
  Transmission Date: 20200409
  Serious: Yes (Hospitalization, Other)
  Sender: FDA-Public Use
  Company Number: US-ACTELION-A-NJ2019-191934

PATIENT
  Age: 67 Year
  Sex: Female
  Weight: 90.25 kg

DRUGS (5)
  1. OXYGEN. [Concomitant]
     Active Substance: OXYGEN
     Dosage: 3 LITERS, CONTINUOUSLY
  2. ADCIRCA [Concomitant]
     Active Substance: TADALAFIL
  3. OPSUMIT [Suspect]
     Active Substance: MACITENTAN
     Indication: PULMONARY ARTERIAL HYPERTENSION
     Dosage: 10 MG, QD
     Route: 048
  4. VELETRI [Suspect]
     Active Substance: EPOPROSTENOL
     Indication: PULMONARY ARTERIAL HYPERTENSION
     Dosage: 38.5 NG/KG, PER MIN
     Route: 042
  5. VELETRI [Suspect]
     Active Substance: EPOPROSTENOL
     Dosage: 38.5 NG/KG, PER MIN
     Route: 042

REACTIONS (17)
  - Oxygen saturation decreased [Unknown]
  - Splenic injury [Unknown]
  - Pleural effusion [Unknown]
  - Aspiration pleural cavity [Unknown]
  - Nephrectomy [Unknown]
  - Diaphragmatic injury [Unknown]
  - Postoperative wound infection [Unknown]
  - Factor XII deficiency [Unknown]
  - Renal neoplasm [Unknown]
  - Diarrhoea [Unknown]
  - Gastrointestinal procedural complication [Unknown]
  - Clostridium difficile infection [Unknown]
  - Renal cancer [Unknown]
  - Dyspnoea [Unknown]
  - Internal haemorrhage [Unknown]
  - Systemic lupus erythematosus [Unknown]
  - Nausea [Not Recovered/Not Resolved]

NARRATIVE: CASE EVENT DATE: 201906
